FAERS Safety Report 4492538-6 (Version None)
Quarter: 2004Q4

REPORT INFORMATION
  Report Type: 
  Country: None (occurrence: None)
  Receive Date: 20041101
  Receipt Date: 20041101
  Transmission Date: 20050328
  Serious: No
  Sender: FDA-Public Use
  Company Number: None

PATIENT
  Age: 61 Year
  Sex: Male
  Weight: 116 kg

DRUGS (1)
  1. VERSED [Suspect]
     Indication: SEDATION
     Dosage: 1MG X 1 IV
     Route: 042
     Dates: start: 20040901

REACTIONS (2)
  - HYPOTONIC-HYPORESPONSIVE EPISODE [None]
  - LETHARGY [None]
